FAERS Safety Report 25541539 (Version 2)
Quarter: 2025Q3

REPORT INFORMATION
  Report Type: Spontaneous
  Country: CA (occurrence: CA)
  Receive Date: 20250711
  Receipt Date: 20250827
  Transmission Date: 20251020
  Serious: Yes (Other)
  Sender: INTERCEPT PHARMACEUTICALS
  Company Number: CA-ADVANZ PHARMA-202505004007

PATIENT
  Sex: Female

DRUGS (4)
  1. OCALIVA [Suspect]
     Active Substance: OBETICHOLIC ACID
     Indication: Primary biliary cholangitis
     Route: 048
     Dates: start: 20250507, end: 202506
  2. URSODIOL [Concomitant]
     Active Substance: URSODIOL
     Dates: start: 202307
  3. TRAZODONE [Concomitant]
     Active Substance: TRAZODONE HYDROCHLORIDE
  4. SYNTHROID [Concomitant]
     Active Substance: LEVOTHYROXINE SODIUM
     Indication: Thyroid disorder

REACTIONS (3)
  - Cholestasis [Recovering/Resolving]
  - Pruritus [Unknown]
  - Therapy cessation [Unknown]
